FAERS Safety Report 3774935 (Version 4)
Quarter: 2017Q3

REPORT INFORMATION
  Report Type: Spontaneous
  Country: ES (occurrence: DE)
  Receive Date: 20020318
  Receipt Date: 20170913
  Transmission Date: 20171128
  Serious: Yes (Death, Hospitalization)
  Sender: FDA-Public Use
  Company Number: PHNU2002DE00942

PATIENT
  Age: 33 Year
  Sex: Male

DRUGS (4)
  1. ANTIMYCOBACTERIALS [Concomitant]
     Active Substance: UNSPECIFIED INGREDIENT
     Indication: PRODUCT USED FOR UNKNOWN INDICATION
     Route: 065
  2. DICLOFENAC [Suspect]
     Active Substance: DICLOFENAC
     Indication: PAIN
     Dosage: 100 MG, BID
     Route: 048
     Dates: start: 200111
  3. DICLOFENAC [Suspect]
     Active Substance: DICLOFENAC
     Dosage: 100 MG, BID
     Route: 048
     Dates: start: 20020219, end: 20020224
  4. VOLTAREN [Suspect]
     Active Substance: DICLOFENAC SODIUM
     Indication: ARTHRALGIA
     Dosage: 100 MG, BID
     Route: 048

REACTIONS (5)
  - Colon cancer [Fatal]
  - Pneumonia [Not Recovered/Not Resolved]
  - Swollen tongue [Not Recovered/Not Resolved]
  - Abdominal pain upper [Not Recovered/Not Resolved]
  - Overdose [Not Recovered/Not Resolved]

NARRATIVE: CASE EVENT DATE: 200202
